FAERS Safety Report 13344090 (Version 1)
Quarter: 2017Q1

REPORT INFORMATION
  Report Type: Spontaneous
  Country: GB (occurrence: GB)
  Receive Date: 20170316
  Receipt Date: 20170316
  Transmission Date: 20170428
  Serious: Yes (Life-Threatening, Hospitalization, Disabling, Other)
  Sender: FDA-Public Use
  Company Number: GB-ELI_LILLY_AND_COMPANY-GB201703005482

PATIENT
  Age: 23 Year
  Sex: Female
  Weight: 57.15 kg

DRUGS (4)
  1. FLUOXETINE [Suspect]
     Active Substance: FLUOXETINE HYDROCHLORIDE
     Indication: OBSESSIVE-COMPULSIVE DISORDER
     Dosage: 20 MG, QD
     Route: 048
     Dates: start: 19970101, end: 20110220
  2. CAFFEINE W/PARACETAMOL [Concomitant]
     Dosage: UNK UNK, UNKNOWN
     Route: 065
  3. LANSOPRAZOLE. [Concomitant]
     Active Substance: LANSOPRAZOLE
     Dosage: UNK UNK, UNKNOWN
     Route: 065
  4. CODEINE PHOSPHATE [Concomitant]
     Active Substance: CODEINE PHOSPHATE
     Dosage: UNK UNK, UNKNOWN
     Route: 065

REACTIONS (6)
  - Suicide attempt [Recovered/Resolved with Sequelae]
  - Spinal fracture [Unknown]
  - Brain injury [Unknown]
  - Skull fracture [Unknown]
  - Drug withdrawal syndrome [Unknown]
  - Psychotic disorder [Recovered/Resolved with Sequelae]

NARRATIVE: CASE EVENT DATE: 20110220
